FAERS Safety Report 22524943 (Version 1)
Quarter: 2023Q2

REPORT INFORMATION
  Report Type: Spontaneous
  Country: GR (occurrence: None)
  Receive Date: 20230606
  Receipt Date: 20230606
  Transmission Date: 20230721
  Serious: Yes (Disabling, Other)
  Sender: FDA-Public Use
  Company Number: 2023A123744

PATIENT
  Sex: Female
  Weight: 89 kg

DRUGS (4)
  1. CRESTOR [Suspect]
     Active Substance: ROSUVASTATIN CALCIUM
     Indication: Dyslipidaemia
     Dosage: 5.0MG UNKNOWN
     Route: 048
     Dates: start: 20080501, end: 20080630
  2. ATORVASTATIN CALCIUM [Suspect]
     Active Substance: ATORVASTATIN CALCIUM
     Indication: Dyslipidaemia
     Dosage: 10.0MG UNKNOWN
     Route: 048
     Dates: start: 20100101, end: 20100122
  3. EZETIMIBE [Suspect]
     Active Substance: EZETIMIBE
     Indication: Dyslipidaemia
     Dosage: 10.0MG UNKNOWN
     Route: 048
     Dates: start: 20060104, end: 20060308
  4. PRAVASTATIN SODIUM [Suspect]
     Active Substance: PRAVASTATIN SODIUM
     Indication: Dyslipidaemia
     Dosage: 20.0MG UNKNOWN
     Route: 048
     Dates: start: 20090306, end: 20090522

REACTIONS (2)
  - Migraine [Recovering/Resolving]
  - Myalgia [Recovered/Resolved]

NARRATIVE: CASE EVENT DATE: 20100108
